FAERS Safety Report 11386961 (Version 1)
Quarter: 2015Q3

REPORT INFORMATION
  Report Type: Spontaneous
  Country: US (occurrence: US)
  Receive Date: 20150811
  Receipt Date: 20150811
  Transmission Date: 20151125
  Serious: No
  Sender: FDA-Public Use
  Company Number: US-ELI_LILLY_AND_COMPANY-US201210007906

PATIENT
  Age: 50 Year
  Sex: Female

DRUGS (1)
  1. AXIRON [Suspect]
     Active Substance: TESTOSTERONE
     Indication: BLOOD TESTOSTERONE DECREASED
     Dosage: UNK, TWO PUMPS EACH ARM, QD (HUSBAND^S DOSE)
     Dates: start: 201111

REACTIONS (1)
  - Acne [Unknown]

NARRATIVE: CASE EVENT DATE: 201209
